FAERS Safety Report 20862018 (Version 2)
Quarter: 2022Q2

REPORT INFORMATION
  Report Type: Report from Study
  Country: US (occurrence: US)
  Receive Date: 20220523
  Receipt Date: 20220615
  Transmission Date: 20220720
  Serious: Yes (Death, Other)
  Sender: FDA-Public Use
  Company Number: US-JNJFOC-20220540173

PATIENT
  Age: 58 Year
  Sex: Female

DRUGS (6)
  1. SPRAVATO [Suspect]
     Active Substance: ESKETAMINE
     Indication: Depression
     Dosage: ^56MG, 2 TOTAL DOSES^
     Dates: start: 20211019, end: 20211020
  2. SPRAVATO [Suspect]
     Active Substance: ESKETAMINE
     Dosage: ^84 MG, 13 TOTAL DOSES^
     Dates: start: 20211110, end: 20220301
  3. BUPROPION [Concomitant]
     Active Substance: BUPROPION
     Route: 065
  4. REXULTI [Concomitant]
     Active Substance: BREXPIPRAZOLE
     Route: 065
  5. ZYPREXA [Concomitant]
     Active Substance: OLANZAPINE
     Route: 065
  6. LAMICTAL [Concomitant]
     Active Substance: LAMOTRIGINE
     Route: 065

REACTIONS (2)
  - Completed suicide [Fatal]
  - Major depression [Unknown]

NARRATIVE: CASE EVENT DATE: 20220328
